FAERS Safety Report 8622214-7 (Version None)
Quarter: 2012Q3

REPORT INFORMATION
  Report Type: 
  Country: None (occurrence: None)
  Receive Date: 20120827
  Receipt Date: 20120821
  Transmission Date: 20120928
  Serious: Yes (Other)
  Sender: FDA-Public Use
  Company Number: US-AMGEN-USASP2012053182

PATIENT
  Age: 68 Year
  Sex: Female

DRUGS (1)
  1. ENBREL [Suspect]
     Indication: RHEUMATOID ARTHRITIS
     Dosage: 50 UNK, 2 TIMES/WK
     Route: 058
     Dates: start: 20120801, end: 20120821

REACTIONS (4)
  - INJECTION SITE HAEMATOMA [None]
  - DEHYDRATION [None]
  - ARTHROPOD BITE [None]
  - DIARRHOEA [None]
